FAERS Safety Report 7598463-6 (Version None)
Quarter: 2011Q3

REPORT INFORMATION
  Report Type: 
  Country: None (occurrence: None)
  Receive Date: 20110708
  Receipt Date: 20110628
  Transmission Date: 20111222
  Serious: Yes (Death, Other)
  Sender: FDA-Public Use
  Company Number: ES-ELI_LILLY_AND_COMPANY-ES201107000056

PATIENT

DRUGS (2)
  1. DACARBAZINE [Concomitant]
     Dosage: 500 MG/M2, 2/W
     Route: 065
  2. GEMCITABINE HYDROCHLORIDE [Suspect]
     Indication: SARCOMA
     Dosage: 10 MG/M2, OVER THREE HOURS, (TOTAL OF 1800 MG/M2)
     Route: 042

REACTIONS (1)
  - PNEUMONIA [None]
